FAERS Safety Report 4877924-4 (Version None)
Quarter: 2006Q1

REPORT INFORMATION
  Report Type: 
  Country: None (occurrence: None)
  Receive Date: 20060110
  Receipt Date: 20051227
  Transmission Date: 20060701
  Serious: Yes (Hospitalization)
  Sender: FDA-Public Use
  Company Number: 13148

PATIENT
  Age: 4 Year
  Sex: Female
  Weight: 19 kg

DRUGS (1)
  1. METHOTREXATE [Suspect]
     Indication: BONE SARCOMA
     Dosage: 9 G/M2 FREQ UNK IV
     Route: 042
     Dates: start: 20051220, end: 20051220

REACTIONS (9)
  - ABDOMINAL PAIN [None]
  - ASPARTATE AMINOTRANSFERASE INCREASED [None]
  - CHILLS [None]
  - DISTURBANCE IN ATTENTION [None]
  - ELECTROENCEPHALOGRAM ABNORMAL [None]
  - ENCEPHALOPATHY [None]
  - HEADACHE [None]
  - NAUSEA [None]
  - VOMITING [None]
